FAERS Safety Report 21614437 (Version 1)
Quarter: 2022Q4

REPORT INFORMATION
  Report Type: Spontaneous
  Country: US (occurrence: None)
  Receive Date: 20221117
  Receipt Date: 20221117
  Transmission Date: 20230112
  Serious: No
  Sender: FDA-Public Use
  Company Number: None

PATIENT
  Sex: Female

DRUGS (1)
  1. DUPIXENT [Suspect]
     Active Substance: DUPILUMAB
     Indication: Asthma
     Dosage: 200MG EVERY 2 WEEKS UNDER THE SKIN?
     Route: 058
     Dates: start: 202209

REACTIONS (4)
  - Device malfunction [None]
  - Device leakage [None]
  - Needle issue [None]
  - Product dose omission issue [None]
